FAERS Safety Report 15517448 (Version 2)
Quarter: 2018Q4

REPORT INFORMATION
  Report Type: Spontaneous
  Country: CH (occurrence: CH)
  Receive Date: 20181017
  Receipt Date: 20181113
  Transmission Date: 20190205
  Serious: Yes (Life-Threatening, Hospitalization, Other)
  Sender: FDA-Public Use
  Company Number: CH-MYLANLABS-2018M1075761

PATIENT
  Age: 26 Year
  Sex: Female
  Weight: 67 kg

DRUGS (6)
  1. RIAMET [Concomitant]
     Active Substance: ARTEMETHER\LUMEFANTRINE
     Indication: PRODUCT USED FOR UNKNOWN INDICATION
     Dosage: RECEIVED AT 20180920 - T0, 8H, 24H, 48H, 60H
     Route: 048
  2. DAFALGAN [Concomitant]
     Active Substance: ACETAMINOPHEN
     Indication: PRODUCT USED FOR UNKNOWN INDICATION
     Dosage: AS NECESSARY
     Route: 048
  3. ARTESUN [Suspect]
     Active Substance: ARTESUNATE
     Indication: MALARIA
     Dosage: 2.4 MG/KG, UNK (INFUSION RECEIVED AT T0, 12H, 24H 48H)
     Dates: start: 20180917
  4. BRUFEN [Suspect]
     Active Substance: IBUPROFEN
     Indication: PRODUCT USED FOR UNKNOWN INDICATION
     Dosage: 600 MG, UNK
  5. RIAMET [Concomitant]
     Active Substance: ARTEMETHER\LUMEFANTRINE
     Dosage: UNK (0, 8, 24, 48 AND) 600H
     Dates: start: 20180920
  6. DOXYCYCLIN                         /00055701/ [Concomitant]
     Active Substance: DOXYCYCLINE
     Indication: MALARIA PROPHYLAXIS
     Dosage: UNK
     Dates: start: 20180817, end: 20180830

REACTIONS (5)
  - Haemolytic anaemia [Not Recovered/Not Resolved]
  - Chromaturia [Unknown]
  - Melaena [Recovered/Resolved]
  - Pyrexia [Unknown]
  - Chills [Unknown]

NARRATIVE: CASE EVENT DATE: 20180928
